FAERS Safety Report 11189159 (Version 2)
Quarter: 2015Q2

REPORT INFORMATION
  Report Type: Spontaneous
  Country: GB (occurrence: GB)
  Receive Date: 20150615
  Receipt Date: 20150615
  Transmission Date: 20150821
  Serious: Yes (Death, Hospitalization)
  Sender: FDA-Public Use
  Company Number: GB-TEVA-568725ACC

PATIENT

DRUGS (3)
  1. ATENOLOL. [Interacting]
     Active Substance: ATENOLOL
  2. CLARITHROMYCIN. [Suspect]
     Active Substance: CLARITHROMYCIN
  3. VERAPAMIL [Interacting]
     Active Substance: VERAPAMIL HYDROCHLORIDE

REACTIONS (5)
  - Cardiac arrest [Not Recovered/Not Resolved]
  - Atrioventricular block complete [Fatal]
  - Drug interaction [Unknown]
  - Contraindicated drug administered [Unknown]
  - Fall [Not Recovered/Not Resolved]

NARRATIVE: CASE EVENT DATE: 20150420
